FAERS Safety Report 9471749 (Version 1)
Quarter: 2013Q3

REPORT INFORMATION
  Report Type: Spontaneous
  Country: US (occurrence: US)
  Receive Date: 20130822
  Receipt Date: 20130822
  Transmission Date: 20140515
  Serious: Yes (Hospitalization)
  Sender: FDA-Public Use
  Company Number: US-GLAXOSMITHKLINE-A1037902A

PATIENT
  Sex: Female

DRUGS (1)
  1. LAMICTAL [Suspect]
     Indication: PRODUCT USED FOR UNKNOWN INDICATION
     Route: 065

REACTIONS (6)
  - Liver disorder [Unknown]
  - Renal disorder [Unknown]
  - Rash [Unknown]
  - Pyrexia [Unknown]
  - Feeling abnormal [Unknown]
  - Decreased activity [Not Recovered/Not Resolved]
